FAERS Safety Report 8934398 (Version 1)
Quarter: 2012Q4

REPORT INFORMATION
  Report Type: 
  Country: US (occurrence: US)
  Receive Date: 20121129
  Receipt Date: 20121129
  Transmission Date: 20130627
  Serious: Yes (Other)
  Sender: FDA-Public Use
  Company Number: US-ROCHE-1148889

PATIENT
  Age: 58 Year
  Sex: Female
  Weight: 78.54 kg

DRUGS (4)
  1. PEGASYS [Suspect]
     Indication: HEPATITIS C
     Route: 065
     Dates: start: 20120928
  2. RIBAVIRIN [Suspect]
     Indication: HEPATITIS C
     Route: 048
     Dates: start: 20120928
  3. TELAPREVIR [Concomitant]
     Indication: HEPATITIS C
     Route: 065
     Dates: start: 20120928
  4. POTASSIUM [Concomitant]

REACTIONS (1)
  - Haematuria [Recovered/Resolved]
